FAERS Safety Report 23341068 (Version 1)
Quarter: 2023Q4

REPORT INFORMATION
  Report Type: Spontaneous
  Country: JP (occurrence: JP)
  Receive Date: 20231227
  Receipt Date: 20231227
  Transmission Date: 20240109
  Serious: Yes (Other)
  Sender: FDA-Public Use
  Company Number: JP-ASTELLAS-2022JP004026

PATIENT
  Age: 7 Decade

DRUGS (4)
  1. XOSPATA [Suspect]
     Active Substance: GILTERITINIB
     Indication: Acute myeloid leukaemia recurrent
     Route: 048
     Dates: start: 20210601, end: 20210801
  2. XOSPATA [Suspect]
     Active Substance: GILTERITINIB
     Indication: Acute myeloid leukaemia refractory
     Route: 048
     Dates: start: 20210929, end: 20211012
  3. XOSPATA [Suspect]
     Active Substance: GILTERITINIB
     Route: 048
     Dates: start: 20211013
  4. XOSPATA [Suspect]
     Active Substance: GILTERITINIB
     Route: 048
     Dates: start: 20230711

REACTIONS (4)
  - Acute myeloid leukaemia recurrent [Unknown]
  - Oedema [Recovered/Resolved]
  - Blood creatine phosphokinase increased [Recovering/Resolving]
  - WT1 gene mutation [Recovered/Resolved]

NARRATIVE: CASE EVENT DATE: 20210101
